FAERS Safety Report 24185424 (Version 1)
Quarter: 2024Q3

REPORT INFORMATION
  Report Type: Spontaneous
  Country: US (occurrence: US)
  Receive Date: 20240807
  Receipt Date: 20240807
  Transmission Date: 20241016
  Serious: No
  Sender: MERCK
  Company Number: US-009507513-2407USA014515

PATIENT
  Age: 35 Year
  Sex: Male

DRUGS (6)
  1. NOXAFIL [Suspect]
     Active Substance: POSACONAZOLE
     Indication: Allergic fungal rhinosinusitis
     Dosage: 300 MILLIGRAM, Q12H, LOADING DOSE
     Route: 048
  2. NOXAFIL [Suspect]
     Active Substance: POSACONAZOLE
     Dosage: 300 MILLIGRAM, QD
     Route: 048
  3. ISAVUCONAZONIUM [Concomitant]
     Active Substance: ISAVUCONAZONIUM
     Indication: Prophylaxis
     Dosage: 372 MILLIGRAM, QD
     Route: 048
  4. ISAVUCONAZONIUM [Concomitant]
     Active Substance: ISAVUCONAZONIUM
     Indication: Allergic fungal rhinosinusitis
  5. AMPHOTERICIN B [Concomitant]
     Active Substance: AMPHOTERICIN B
     Indication: Allergic fungal rhinosinusitis
     Dosage: 5 MILLIGRAM/KILOGRAM, QD
     Route: 042
  6. MICAFUNGIN [Concomitant]
     Active Substance: MICAFUNGIN SODIUM
     Indication: Allergic fungal rhinosinusitis
     Dosage: UNK

REACTIONS (1)
  - Off label use [Unknown]
